FAERS Safety Report 8470405 (Version 5)
Quarter: 2012Q4

REPORT INFORMATION
  Report Type: 
  Country: DE (occurrence: DE)
  Receive Date: 20120321
  Receipt Date: 20120904
  Transmission Date: 20130627
  Serious: Yes (Death, Other)
  Sender: FDA-Public Use
  Company Number: DE-CELGENEUS-062-21880-12030833

PATIENT
  Age: 59 Year
  Sex: Male
  Weight: 103 kg

DRUGS (7)
  1. REVLIMID [Suspect]
     Indication: MULTIPLE MYELOMA
     Dosage: 10 Milligram
     Route: 048
     Dates: start: 20110913, end: 20120228
  2. REVLIMID [Suspect]
     Dosage: 5 Milligram
     Route: 048
     Dates: start: 20110913, end: 20120227
  3. REVLIMID [Suspect]
     Dosage: 25 Milligram
     Route: 048
  4. RAMIPRIL [Concomitant]
     Indication: DRUG USE FOR UNKNOWN INDICATION
     Route: 065
  5. CHOLECALCIFEROL [Concomitant]
     Indication: DRUG USE FOR UNKNOWN INDICATION
     Route: 065
  6. L-THYROXIN [Concomitant]
     Indication: DRUG USE FOR UNKNOWN INDICATION
     Route: 065
  7. ASPIRINE [Concomitant]
     Indication: DEEP VENOUS THROMBOSIS PROPHYLAXIS
     Dosage: 100 Milligram
     Route: 065

REACTIONS (3)
  - Diarrhoea infectious [Fatal]
  - Infection [Fatal]
  - Transaminases increased [Unknown]
